FAERS Safety Report 17450543 (Version 1)
Quarter: 2020Q1

REPORT INFORMATION
  Report Type: Spontaneous
  Country: US (occurrence: US)
  Receive Date: 20200221
  Receipt Date: 20200221
  Transmission Date: 20200409
  Serious: Yes (Other)
  Sender: FDA-Public Use
  Company Number: None

PATIENT
  Age: 16 Year
  Sex: Female
  Weight: 60 kg

DRUGS (3)
  1. INFLECTRA [Suspect]
     Active Substance: INFLIXIMAB-DYYB
     Indication: UVEITIS
     Dosage: ?          OTHER FREQUENCY:Q6WEEKS;?
     Route: 040
     Dates: start: 20190329
  2. 0.9@ NACL 250 ML [Concomitant]
     Dates: start: 20190329
  3. INFLECTRA [Suspect]
     Active Substance: INFLIXIMAB-DYYB
     Indication: UVEITIS
     Dosage: ?          OTHER FREQUENCY:Q6WEEKS;?
     Route: 040
     Dates: start: 20190329

REACTIONS (2)
  - Urticaria [None]
  - Anaphylactic reaction [None]

NARRATIVE: CASE EVENT DATE: 20200221
